FAERS Safety Report 25507227 (Version 1)
Quarter: 2025Q3

REPORT INFORMATION
  Report Type: Spontaneous
  Country: GB (occurrence: GB)
  Receive Date: 20250703
  Receipt Date: 20250703
  Transmission Date: 20251020
  Serious: Yes (Other)
  Sender: ALKEM
  Company Number: None

PATIENT
  Age: 54 Year
  Sex: Female

DRUGS (7)
  1. SOLIFENACIN [Suspect]
     Active Substance: SOLIFENACIN
     Indication: Enuresis
     Route: 065
  2. AMITRIPTYLINE [Concomitant]
     Active Substance: AMITRIPTYLINE
     Indication: Pain
     Route: 065
  3. ATORVASTATIN [Concomitant]
     Active Substance: ATORVASTATIN
     Indication: Product used for unknown indication
     Route: 065
  4. KEMADRIN [Concomitant]
     Active Substance: PROCYCLIDINE HYDROCHLORIDE
     Indication: Product used for unknown indication
     Route: 065
  5. LEVOTHYROXINE [Concomitant]
     Active Substance: LEVOTHYROXINE
     Indication: Product used for unknown indication
     Route: 065
  6. PREGABALIN [Concomitant]
     Active Substance: PREGABALIN
     Indication: Bipolar disorder
     Route: 065
  7. LITHIUM [Concomitant]
     Active Substance: LITHIUM
     Indication: Product used for unknown indication
     Route: 065

REACTIONS (2)
  - Confusional state [Unknown]
  - Somnambulism [Recovering/Resolving]
